FAERS Safety Report 6345490-2 (Version None)
Quarter: 2009Q3

REPORT INFORMATION
  Report Type: 
  Country: None (occurrence: None)
  Receive Date: 20090821
  Receipt Date: 20090529
  Transmission Date: 20100115
  Serious: No
  Sender: FDA-Public Use
  Company Number: 8047226

PATIENT
  Age: 40 Year
  Sex: Female
  Weight: 57.1 kg

DRUGS (3)
  1. CIMZIA [Suspect]
     Indication: COLITIS ULCERATIVE
     Dosage: 400 MG 1/2W SC
     Route: 058
     Dates: start: 20081007
  2. IMURAN [Concomitant]
  3. INEXIUM [Concomitant]

REACTIONS (2)
  - DRUG EFFECT DECREASED [None]
  - GINGIVAL BLEEDING [None]
